FAERS Safety Report 22970736 (Version 3)
Quarter: 2023Q4

REPORT INFORMATION
  Report Type: Report from Study
  Country: US (occurrence: US)
  Receive Date: 20230922
  Receipt Date: 20231117
  Transmission Date: 20240110
  Serious: No
  Sender: FDA-Public Use
  Company Number: US-002147023-NVSC2023US201879

PATIENT
  Sex: Female

DRUGS (1)
  1. COSENTYX [Suspect]
     Active Substance: SECUKINUMAB
     Indication: Product used for unknown indication
     Dosage: 150 MG (1X A WEEK FOR 5 WEEKS AND THEN 1X MONTHLY (ON 4TH INJECTION))
     Route: 058
     Dates: start: 202304

REACTIONS (2)
  - Arthralgia [Recovering/Resolving]
  - Pain [Unknown]
